FAERS Safety Report 8380734-7 (Version None)
Quarter: 2012Q2

REPORT INFORMATION
  Report Type: 
  Country: None (occurrence: None)
  Receive Date: 20120523
  Receipt Date: 20120509
  Transmission Date: 20120825
  Serious: Yes (Hospitalization)
  Sender: FDA-Public Use
  Company Number: NL-CELGENEUS-114-20785-10110878

PATIENT
  Sex: Male
  Weight: 67 kg

DRUGS (15)
  1. THALIDOMIDE [Suspect]
     Dosage: 100 MILLIGRAM
     Route: 048
     Dates: end: 20101117
  2. NITRAZEPAM [Concomitant]
     Indication: INSOMNIA
     Route: 048
     Dates: start: 20100901, end: 20101024
  3. THALIDOMIDE [Suspect]
     Dosage: 100 MILLIGRAM
     Route: 048
     Dates: start: 20101014, end: 20101025
  4. LACTULOSE [Concomitant]
     Indication: CONSTIPATION
     Dosage: 30 MILLILITER
     Route: 048
     Dates: start: 20100915, end: 20101024
  5. PREDNISONE [Suspect]
     Dosage: 135 MILLIGRAM
     Route: 048
     Dates: start: 20101014, end: 20101017
  6. ASCAL [Concomitant]
     Dosage: 100 MILLIGRAM
     Route: 048
     Dates: start: 20100915, end: 20101029
  7. OMEPRAZOLE [Concomitant]
     Dosage: 40 MILLIGRAM
     Route: 048
     Dates: start: 20101021, end: 20101029
  8. METOCLOPRAMIDE [Concomitant]
     Indication: NAUSEA
     Dosage: 30 MILLIGRAM
     Route: 048
     Dates: start: 20101017, end: 20101029
  9. MELPHALAN [Suspect]
     Dosage: 12 MILLIGRAM
     Route: 048
     Dates: start: 20101014, end: 20101017
  10. MELPHALAN [Suspect]
     Dosage: 12 MILLIGRAM
     Route: 048
     Dates: end: 20101117
  11. PREDNISONE [Suspect]
     Indication: MULTIPLE MYELOMA
     Dosage: 135 MILLIGRAM
     Route: 048
     Dates: start: 20100915
  12. PREDNISONE [Suspect]
     Dosage: 135 MILLIGRAM
     Route: 048
     Dates: end: 20101117
  13. MELPHALAN [Suspect]
     Indication: MULTIPLE MYELOMA
     Dosage: 12 MILLIGRAM
     Route: 048
     Dates: start: 20100915
  14. THALIDOMIDE [Suspect]
     Indication: MULTIPLE MYELOMA
     Dosage: 100 MILLIGRAM
     Route: 048
     Dates: start: 20100915
  15. ACETAMINOPHEN [Concomitant]
     Dosage: 2 GRAM
     Route: 048
     Dates: start: 20100915, end: 20101001

REACTIONS (2)
  - CONSTIPATION [None]
  - SMALL INTESTINE CARCINOMA [None]
